FAERS Safety Report 10155795 (Version 1)
Quarter: 2014Q2

REPORT INFORMATION
  Report Type: Report from Study
  Country: US (occurrence: US)
  Receive Date: 20140506
  Receipt Date: 20140506
  Transmission Date: 20141212
  Serious: Yes (Other)
  Sender: FDA-Public Use
  Company Number: US-BRISTOL-MYERS SQUIBB COMPANY-20688511

PATIENT
  Age: 39 Year
  Sex: Female
  Weight: 55.8 kg

DRUGS (13)
  1. ORENCIA [Suspect]
     Indication: RHEUMATOID ARTHRITIS
     Route: 042
     Dates: start: 20130101
  2. PRENATAL VITAMINS [Concomitant]
     Dosage: 1 DF = 1 PILL.
     Route: 048
     Dates: start: 20140322
  3. FISH OIL [Concomitant]
     Route: 048
     Dates: start: 20140322
  4. CALCIUM [Concomitant]
     Route: 048
     Dates: start: 20140322
  5. VITAMIN D3 [Concomitant]
     Route: 048
     Dates: start: 20140226
  6. COFFEE [Concomitant]
     Dosage: 1 DF = 0.5 ,1 SERVIN.?26-FEB-2014 T0 21-MAR-2014?22-MAR-2014 TO ONGOING.
     Route: 048
     Dates: start: 20140226
  7. CAFFEINE [Concomitant]
     Dosage: 1 DF = 0.5, 1 SERVIN.?26-FEB-2014 TO 21-MAR-2014?22-MAR-2014 TO ONGOING
     Route: 048
     Dates: start: 20140226
  8. NEXIUM [Concomitant]
     Indication: PROPHYLAXIS
     Route: 048
     Dates: start: 20140226
  9. TYLENOL [Concomitant]
     Indication: HEADACHE
     Route: 048
     Dates: start: 20140226
  10. IBUPROFEN [Concomitant]
     Indication: RHEUMATOID ARTHRITIS
     Route: 048
     Dates: start: 20140226
  11. WINE [Concomitant]
     Dosage: 1 DF = 1 SERVIN.
     Route: 048
     Dates: start: 20140226, end: 20140322
  12. FOLIC ACID+CYANOCOBALAMIN+PYRIDOXINE HCL [Concomitant]
     Dosage: ONGOING
     Route: 048
     Dates: start: 20140322
  13. PREDNISONE [Concomitant]
     Indication: RHEUMATOID ARTHRITIS
     Route: 048
     Dates: start: 20140226

REACTIONS (2)
  - Abortion spontaneous [Unknown]
  - Twin pregnancy [Recovered/Resolved]
